FAERS Safety Report 10042743 (Version 1)
Quarter: 2014Q1

REPORT INFORMATION
  Report Type: Spontaneous
  Country: US (occurrence: US)
  Receive Date: 20140327
  Receipt Date: 20140327
  Transmission Date: 20141002
  Serious: No
  Sender: FDA-Public Use
  Company Number: US-TEVA-471286USA

PATIENT
  Sex: Female
  Weight: 122.58 kg

DRUGS (6)
  1. PROAIR HFA [Suspect]
     Indication: DYSPNOEA
     Dates: start: 20140321
  2. PROAIR HFA [Suspect]
     Indication: PNEUMONIA
  3. SYMBICORT [Concomitant]
     Indication: DYSPNOEA
  4. METHYLPREDNISOLONE [Concomitant]
     Indication: DYSPNOEA
  5. LEVAQUIN [Concomitant]
     Indication: PNEUMONIA
  6. OCEAN NASAL [Concomitant]

REACTIONS (3)
  - Drug ineffective [Not Recovered/Not Resolved]
  - Nervousness [Not Recovered/Not Resolved]
  - Intentional drug misuse [Not Recovered/Not Resolved]
